FAERS Safety Report 7016297-8 (Version None)
Quarter: 2010Q3

REPORT INFORMATION
  Report Type: 
  Country: None (occurrence: None)
  Receive Date: 20100927
  Receipt Date: 20100916
  Transmission Date: 20110219
  Serious: Yes (Hospitalization)
  Sender: FDA-Public Use
  Company Number: NL-PFIZER INC-2010102589

PATIENT
  Age: 64 Year
  Sex: Male

DRUGS (2)
  1. SUNITINIB MALATE [Suspect]
     Indication: RENAL CELL CARCINOMA
     Dosage: 37 MG, 1X/DAY
     Route: 048
     Dates: start: 20100408
  2. NADROPARIN CALCIUM [Suspect]
     Indication: DYSPNOEA
     Dosage: 1.6 ML, UNK
     Route: 058
     Dates: start: 20100325, end: 20100810

REACTIONS (2)
  - ABDOMINAL PAIN [None]
  - HAEMATURIA [None]
